FAERS Safety Report 6698962-5 (Version None)
Quarter: 2010Q2

REPORT INFORMATION
  Report Type: 
  Country: None (occurrence: None)
  Receive Date: 20100427
  Receipt Date: 20100416
  Transmission Date: 20101027
  Serious: No
  Sender: FDA-Public Use
  Company Number: B0641902A

PATIENT
  Age: 5 Month
  Sex: Female
  Weight: 6.1 kg

DRUGS (1)
  1. VENTOLIN [Suspect]
     Indication: BRONCHIOLITIS
     Dosage: .03MGK PER DAY
     Route: 065
     Dates: start: 20100311, end: 20100311

REACTIONS (2)
  - PRODUCT QUALITY ISSUE [None]
  - RASH GENERALISED [None]
